FAERS Safety Report 19468040 (Version 1)
Quarter: 2021Q2

REPORT INFORMATION
  Report Type: Spontaneous
  Country: US (occurrence: US)
  Receive Date: 20210628
  Receipt Date: 20210628
  Transmission Date: 20210717
  Serious: Yes (Other)
  Sender: FDA-Public Use
  Company Number: US-PFIZER INC-001-0073-970412

PATIENT
  Age: 29 Year
  Sex: Male
  Weight: 75.3 kg

DRUGS (6)
  1. PHENYTOIN. [Suspect]
     Active Substance: PHENYTOIN
     Dosage: UNK
  2. CISPLATIN. [Interacting]
     Active Substance: CISPLATIN
     Indication: MALIGNANT MELANOMA
     Dosage: UNK
  3. CARMUSTINE. [Interacting]
     Active Substance: CARMUSTINE
     Indication: MALIGNANT MELANOMA
     Dosage: UNK
  4. TAMOXIFEN CITRATE. [Interacting]
     Active Substance: TAMOXIFEN CITRATE
     Indication: MALIGNANT MELANOMA
     Dosage: UNK
  5. DEXAMETHASONE. [Interacting]
     Active Substance: DEXAMETHASONE
     Indication: MALIGNANT MELANOMA
     Dosage: UNK
     Route: 048
  6. DACARBAZINE. [Interacting]
     Active Substance: DACARBAZINE
     Indication: MALIGNANT MELANOMA
     Dosage: UNK

REACTIONS (2)
  - Drug interaction [Unknown]
  - Anticonvulsant drug level below therapeutic [Unknown]
